FAERS Safety Report 17711367 (Version 1)
Quarter: 2020Q2

REPORT INFORMATION
  Report Type: Spontaneous
  Country: US (occurrence: US)
  Receive Date: 20200427
  Receipt Date: 20200427
  Transmission Date: 20200714
  Serious: Yes (Other)
  Sender: FDA-Public Use
  Company Number: US-PFIZER INC-2020166753

PATIENT
  Sex: Female

DRUGS (1)
  1. CEFTRIAXONE SODIUM. [Suspect]
     Active Substance: CEFTRIAXONE SODIUM
     Indication: LYME DISEASE
     Dosage: UNK

REACTIONS (6)
  - Product use in unapproved indication [Unknown]
  - Poor quality product administered [Unknown]
  - Product storage error [Unknown]
  - Malaise [Unknown]
  - Deep vein thrombosis [Unknown]
  - Off label use [Unknown]
